FAERS Safety Report 9559434 (Version 1)
Quarter: 2013Q3

REPORT INFORMATION
  Report Type: Spontaneous
  Country: US (occurrence: None)
  Receive Date: 20130913
  Receipt Date: 20130913
  Transmission Date: 20140515
  Serious: Yes (Other)
  Sender: FDA-Public Use
  Company Number: 1000045171

PATIENT
  Sex: Female

DRUGS (3)
  1. DALIRESP (ROFLUMILAST) (500 MICROGRAM, TABLETS) [Suspect]
     Indication: CHRONIC OBSTRUCTIVE PULMONARY DISEASE
     Route: 048
     Dates: start: 20130509, end: 20130512
  2. LASIX (FUROSEMIDE) [Concomitant]
  3. OXYGEN (OXYGEN) [Concomitant]

REACTIONS (3)
  - Oxygen saturation decreased [None]
  - Dyspnoea [None]
  - Cough [None]
